FAERS Safety Report 5029825-9 (Version None)
Quarter: 2006Q2

REPORT INFORMATION
  Report Type: 
  Country: None (occurrence: None)
  Receive Date: 20060620
  Receipt Date: 20060603
  Transmission Date: 20061013
  Serious: Yes (Death, Hospitalization, Other)
  Sender: FDA-Public Use
  Company Number: ID-ABBOTT-06P-079-0335064-00

PATIENT
  Age: 53 Year
  Sex: Male
  Weight: 85.3 kg

DRUGS (5)
  1. REDUCTIL 10MG [Suspect]
     Indication: OBESITY
     Route: 048
     Dates: start: 20060602, end: 20060602
  2. ISDN [Concomitant]
     Indication: ANGINA PECTORIS
     Route: 048
     Dates: start: 20060603
  3. CAPTOPRIL [Concomitant]
     Indication: CARDIAC FAILURE
     Route: 048
     Dates: start: 20060603
  4. ACETYLSALICYLIC ACID SRT [Concomitant]
     Indication: CORONARY ARTERY DISEASE
     Route: 048
     Dates: start: 20060603
  5. CEFRIAXON [Concomitant]
     Indication: LUNG DISORDER
     Route: 042
     Dates: start: 20060603

REACTIONS (12)
  - ANGINA PECTORIS [None]
  - CARDIAC FAILURE [None]
  - CORONARY ARTERY DISEASE [None]
  - DIABETES MELLITUS [None]
  - DIZZINESS [None]
  - FALL [None]
  - HYPERHIDROSIS [None]
  - LEUKOCYTOSIS [None]
  - LOSS OF CONSCIOUSNESS [None]
  - LUNG DISORDER [None]
  - PNEUMONIA [None]
  - PULSE ABSENT [None]
